FAERS Safety Report 23917369 (Version 1)
Quarter: 2024Q2

REPORT INFORMATION
  Report Type: Spontaneous
  Country: US (occurrence: US)
  Receive Date: 20240529
  Receipt Date: 20240529
  Transmission Date: 20240716
  Serious: Yes (Life-Threatening, Hospitalization, Other)
  Sender: FDA-Public Use
  Company Number: US-BRISTOL-MYERS SQUIBB COMPANY-2024-083005

PATIENT
  Age: 85 Year
  Sex: Male

DRUGS (3)
  1. NIVOLUMAB [Suspect]
     Active Substance: NIVOLUMAB
     Indication: Hepatocellular carcinoma
     Dosage: 19 CYCLES OF NIVOLUMAB
  2. NIVOLUMAB [Suspect]
     Active Substance: NIVOLUMAB
     Dosage: 4 CYCLE OF NIVOLUMAB/IPILIMUMAB
  3. IPILIMUMAB [Suspect]
     Active Substance: IPILIMUMAB
     Indication: Hepatocellular carcinoma
     Dosage: 4 CYCLE OF NIVOLUMAB/IPILIMUMAB

REACTIONS (1)
  - Immune-mediated myasthenia gravis [Recovering/Resolving]
